FAERS Safety Report 6213908-1 (Version None)
Quarter: 2009Q2

REPORT INFORMATION
  Report Type: 
  Country: None (occurrence: None)
  Receive Date: 20090601
  Receipt Date: 20090601
  Transmission Date: 20091009
  Serious: Yes (Other)
  Sender: FDA-Public Use
  Company Number: None

PATIENT
  Sex: Male

DRUGS (2)
  1. AZITHROMYCIN [Suspect]
     Dosage: #6 2 DAY 1, 1 QD XAD PO
     Route: 048
     Dates: start: 20090514, end: 20090518
  2. CHERATUSSIN AC QUALITEST [Suspect]
     Indication: COUGH
     Dosage: #240 ML 1 TSP Q4-6H PRN CO PO
     Route: 048
     Dates: start: 20090514, end: 20090518

REACTIONS (1)
  - AGEUSIA [None]
